FAERS Safety Report 11823748 (Version 1)
Quarter: 2015Q4

REPORT INFORMATION
  Report Type: Spontaneous
  Country: JP (occurrence: JP)
  Receive Date: 20151210
  Receipt Date: 20151210
  Transmission Date: 20160305
  Serious: Yes (Other)
  Sender: FDA-Public Use
  Company Number: JP-SA-2015SA203243

PATIENT
  Age: 71 Year
  Sex: Male
  Weight: 60.3 kg

DRUGS (9)
  1. MAGLAX [Concomitant]
     Active Substance: MAGNESIUM OXIDE
  2. ALLEGRA [Concomitant]
     Active Substance: FEXOFENADINE HYDROCHLORIDE
     Route: 048
  3. PLAVIX [Suspect]
     Active Substance: CLOPIDOGREL BISULFATE
     Indication: CAROTID ARTERY STENOSIS
     Route: 048
     Dates: start: 201506, end: 20150815
  4. PROMAC [Suspect]
     Active Substance: NITROFURANTOIN
     Route: 048
     Dates: start: 201503, end: 20150815
  5. CONTAC SEVERE COLD+FLU CAP MAX STRENGTH [Suspect]
     Active Substance: ACETAMINOPHEN\CHLORPHENIRAMINE MALEATE\DEXTROMETHORPHAN HYDROBROMIDE\PSEUDOEPHEDRINE HYDROCHLORIDE
     Route: 048
     Dates: start: 20150815, end: 20150815
  6. PARIET [Suspect]
     Active Substance: RABEPRAZOLE SODIUM
     Route: 048
     Dates: start: 201503, end: 20150815
  7. BLOPRESS [Concomitant]
     Active Substance: CANDESARTAN CILEXETIL
  8. LAC-B [Concomitant]
     Active Substance: BIFIDOBACTERIUM SPP.
  9. HARNAL [Concomitant]
     Active Substance: TAMSULOSIN HYDROCHLORIDE
     Route: 048
     Dates: start: 2014

REACTIONS (3)
  - Agranulocytosis [Recovered/Resolved]
  - Pyomyositis [Recovering/Resolving]
  - Febrile neutropenia [Recovered/Resolved]

NARRATIVE: CASE EVENT DATE: 20150816
